FAERS Safety Report 10017324 (Version 3)
Quarter: 2014Q1

REPORT INFORMATION
  Report Type: Report from Study
  Country: NL (occurrence: NL)
  Receive Date: 20140318
  Receipt Date: 20140327
  Transmission Date: 20141002
  Serious: Yes (Hospitalization, Other)
  Sender: FDA-Public Use
  Company Number: NL-JNJFOC-20140303113

PATIENT
  Age: 67 Year
  Sex: Male
  Weight: 78 kg

DRUGS (12)
  1. ABIRATERONE ACETATE [Suspect]
     Indication: PROSTATE CANCER METASTATIC
     Route: 048
     Dates: start: 20130718, end: 20130820
  2. OXYNORM [Suspect]
     Indication: PAIN
     Dosage: AS NEEDED
     Route: 048
  3. OXYNORM [Suspect]
     Indication: PAIN
     Route: 048
  4. PREDNISOLONE [Concomitant]
     Route: 048
  5. SANDOZ [Concomitant]
     Route: 062
  6. MAGNESIUM HYDROXIDE [Concomitant]
     Route: 048
  7. OMEPRAZOLE [Concomitant]
     Route: 048
  8. METOCLOPRAMIDE [Concomitant]
     Dosage: AS NECESSARY
     Route: 048
  9. VASELINE [Concomitant]
     Route: 003
  10. BICALUTAMIDE [Concomitant]
     Route: 048
  11. PARACETAMOL [Concomitant]
     Route: 065
  12. IBUPROFEN [Concomitant]
     Route: 065

REACTIONS (8)
  - Vomiting [Unknown]
  - Nausea [Recovered/Resolved]
  - Constipation [Unknown]
  - Pneumonia [Recovering/Resolving]
  - Cardiac murmur [Unknown]
  - Somnolence [Unknown]
  - Pain in extremity [Unknown]
  - Weight decreased [Unknown]
